FAERS Safety Report 22253494 (Version 4)
Quarter: 2023Q2

REPORT INFORMATION
  Report Type: Report from Study
  Country: US (occurrence: US)
  Receive Date: 20230426
  Receipt Date: 20230627
  Transmission Date: 20230722
  Serious: No
  Sender: FDA-Public Use
  Company Number: US-002147023-NVSC2023US095106

PATIENT
  Sex: Female

DRUGS (2)
  1. KISQALI [Suspect]
     Active Substance: RIBOCICLIB
     Indication: Product used for unknown indication
     Dosage: UNK
     Route: 065
  2. KISQALI [Suspect]
     Active Substance: RIBOCICLIB
     Dosage: 400 MG
     Route: 065

REACTIONS (10)
  - Skin lesion [Unknown]
  - Acne [Unknown]
  - Pruritus [Unknown]
  - Skin burning sensation [Unknown]
  - Back pain [Unknown]
  - Blister [Unknown]
  - Rash [Unknown]
  - Diarrhoea [Unknown]
  - Muscle spasms [Unknown]
  - Lethargy [Unknown]
